FAERS Safety Report 8816075 (Version 4)
Quarter: 2013Q1

REPORT INFORMATION
  Report Type: Spontaneous
  Country: US (occurrence: US)
  Receive Date: 20120928
  Receipt Date: 20130227
  Transmission Date: 20140127
  Serious: Yes (Hospitalization, Other)
  Sender: FDA-Public Use
  Company Number: US-PFIZER INC-2012240269

PATIENT
  Age: 66 Year
  Sex: Female
  Weight: 107 kg

DRUGS (11)
  1. LYRICA [Suspect]
     Indication: FIBROMYALGIA
     Dosage: 150 MG, 2X/DAY
  2. LYRICA [Suspect]
     Dosage: 75 MG, 1X/DAY
  3. CYMBALTA [Concomitant]
     Indication: ARTHRITIS
     Dosage: 60MG DAILY
     Route: 048
  4. CYMBALTA [Concomitant]
     Indication: DEPRESSION
  5. LANTUS [Concomitant]
     Indication: DIABETES MELLITUS
     Dosage: 40 IU IN THE MORNING DAILY
  6. NOVOLOG [Concomitant]
     Indication: DIABETES MELLITUS
     Dosage: 10 IU, 3X/DAY
  7. CLONAZEPAM [Concomitant]
     Indication: ANXIETY
     Dosage: 1 MG TO 1.5 MG DAILY
  8. PRIMIDONE [Concomitant]
     Indication: TREMOR
     Dosage: 50 MG, 2X/DAY
  9. SYNTHROID [Concomitant]
     Indication: THYROID DISORDER
     Dosage: 0.125 MG DAILY
  10. CARAFATE [Concomitant]
     Indication: IRRITABLE BOWEL SYNDROME
     Dosage: 1 G, 3X/DAY (BEFORE MEALS)
  11. CARAFATE [Concomitant]
     Indication: GASTRIC ULCER

REACTIONS (5)
  - Cerebrovascular accident [Unknown]
  - Cerebrovascular accident [Unknown]
  - Pharyngeal oedema [Unknown]
  - Speech disorder [Unknown]
  - Facial pain [Unknown]
